FAERS Safety Report 7100155-4 (Version None)
Quarter: 2010Q4

REPORT INFORMATION
  Report Type: 
  Country: None (occurrence: None)
  Receive Date: 20101112
  Receipt Date: 20100610
  Transmission Date: 20110411
  Serious: Yes (Other)
  Sender: FDA-Public Use
  Company Number: A0864290A

PATIENT
  Age: 45 Year
  Sex: Female

DRUGS (1)
  1. COREG [Suspect]
     Dosage: 3.125MG PER DAY
     Route: 048
     Dates: start: 20070101

REACTIONS (2)
  - ANGIOEDEMA [None]
  - FACE OEDEMA [None]
